FAERS Safety Report 4853883-5 (Version None)
Quarter: 2005Q4

REPORT INFORMATION
  Report Type: 
  Country: None (occurrence: None)
  Receive Date: 20051213
  Receipt Date: 20051130
  Transmission Date: 20060501
  Serious: Yes (Other)
  Sender: FDA-Public Use
  Company Number: 2005162079

PATIENT
  Age: 43 Year
  Sex: Male
  Weight: 83.9154 kg

DRUGS (2)
  1. UNISOM SLEEPGELS          (DIPHENHYDRAMINE) [Suspect]
     Indication: INSOMNIA
     Dosage: ONE SLEEPGEL NIGHLY, ORAL
     Route: 048
     Dates: start: 20051101
  2. ETHANOL    (EHTANOL) [Suspect]
     Dosage: UNSPECIFIED, ORAL
     Route: 048

REACTIONS (3)
  - CONSTIPATION [None]
  - ERECTILE DYSFUNCTION [None]
  - LIBIDO DECREASED [None]
